FAERS Safety Report 15828881 (Version 1)
Quarter: 2019Q1

REPORT INFORMATION
  Report Type: Spontaneous
  Country: US (occurrence: US)
  Receive Date: 20190115
  Receipt Date: 20190115
  Transmission Date: 20190417
  Serious: Yes (Other)
  Sender: FDA-Public Use
  Company Number: US-REGENERON PHARMACEUTICALS, INC.-2018-20386

PATIENT

DRUGS (10)
  1. VITAMINS                           /00067501/ [Concomitant]
     Active Substance: VITAMINS
     Indication: PRODUCT USED FOR UNKNOWN INDICATION
  2. LISINOPRIL. [Concomitant]
     Active Substance: LISINOPRIL
     Indication: PRODUCT USED FOR UNKNOWN INDICATION
  3. CRANBERRY                          /01512301/ [Concomitant]
     Active Substance: CRANBERRY
     Indication: PRODUCT USED FOR UNKNOWN INDICATION
  4. EYLEA [Suspect]
     Active Substance: AFLIBERCEPT
     Indication: MACULAR OEDEMA
     Dosage: LEFT EYE (OS), EVERY 4-5 WEEKS
     Route: 031
     Dates: start: 20150909
  5. EYLEA [Suspect]
     Active Substance: AFLIBERCEPT
     Dosage: LEFT EYE (OS), EVERY 4-5 WEEKS, LAST DOSE PRIOR EVENT
     Route: 031
     Dates: start: 20180227, end: 20180227
  6. LATANOPROST. [Concomitant]
     Active Substance: LATANOPROST
     Indication: PRODUCT USED FOR UNKNOWN INDICATION
  7. CRESTOR [Concomitant]
     Active Substance: ROSUVASTATIN CALCIUM
     Indication: PRODUCT USED FOR UNKNOWN INDICATION
  8. GLUCOSE [Concomitant]
     Active Substance: DEXTROSE
     Indication: PRODUCT USED FOR UNKNOWN INDICATION
  9. TIMOLOL. [Concomitant]
     Active Substance: TIMOLOL
     Indication: PRODUCT USED FOR UNKNOWN INDICATION
  10. EYLEA [Suspect]
     Active Substance: AFLIBERCEPT
     Dosage: LEFT EYE (OS), EVERY 4-5 WEEKS, LAST DOSE
     Route: 031
     Dates: start: 20180330, end: 20180330

REACTIONS (1)
  - Non-infectious endophthalmitis [Not Recovered/Not Resolved]

NARRATIVE: CASE EVENT DATE: 20180301
